FAERS Safety Report 5977689-9 (Version None)
Quarter: 2008Q4

REPORT INFORMATION
  Report Type: 
  Country: None (occurrence: None)
  Receive Date: 20081203
  Receipt Date: 20081121
  Transmission Date: 20090506
  Serious: Yes (Hospitalization)
  Sender: FDA-Public Use
  Company Number: US-ROCHE-560427

PATIENT
  Sex: Male
  Weight: 85.7 kg

DRUGS (9)
  1. PEG-INTERFERON ALFA 2A (RO 25-8310) [Suspect]
     Dosage: DOSE BLINDED
     Route: 058
     Dates: start: 20080305
  2. PEG-INTERFERON ALFA 2A (RO 25-8310) [Suspect]
     Dosage: LAST DOSE PRIOR TO SAE 10 APRIL 2008
     Route: 058
     Dates: end: 20080410
  3. RIBAVIRIN [Suspect]
     Dosage: FREQUENCY: DAILY. DOSE BLINDED FORM: PILL; LAST DOSE PRIOR TO SAE 15 APRIL 2008
     Route: 048
     Dates: start: 20080305, end: 20080415
  4. GLIPIZIDE [Concomitant]
     Dosage: NAME: GLIPIZIDE XL
     Dates: start: 20060701
  5. METFORMIN HCL [Concomitant]
     Dates: start: 20060701
  6. GEMFIBROZIL [Concomitant]
     Dates: start: 20060701
  7. LEXAPRO [Concomitant]
     Dates: start: 20080201
  8. PROVIGIL [Concomitant]
     Dates: start: 20080305, end: 20080411
  9. CELEXA [Concomitant]
     Dates: start: 20080201, end: 20080428

REACTIONS (1)
  - CALCULUS URETERIC [None]
